FAERS Safety Report 8876306 (Version 2)
Quarter: 2013Q1

REPORT INFORMATION
  Report Type: Spontaneous
  Country: US (occurrence: US)
  Receive Date: 20121023
  Receipt Date: 20130227
  Transmission Date: 20140127
  Serious: No
  Sender: FDA-Public Use
  Company Number: US-ASTRAZENECA-2012SE74541

PATIENT
  Age: 58 Year
  Sex: Male

DRUGS (3)
  1. PRILOSEC [Suspect]
     Indication: GASTROOESOPHAGEAL REFLUX DISEASE
     Dosage: IN THE MORNING
     Route: 048
  2. NEXIUM [Suspect]
     Indication: GASTROOESOPHAGEAL REFLUX DISEASE
     Route: 048
  3. PROTONIX [Suspect]
     Route: 065

REACTIONS (3)
  - Gastrooesophageal reflux disease [Unknown]
  - Barrett^s oesophagus [Unknown]
  - Drug effect incomplete [Unknown]
